FAERS Safety Report 9352774 (Version 1)
Quarter: 2013Q2

REPORT INFORMATION
  Report Type: Spontaneous
  Country: US (occurrence: None)
  Receive Date: 20130614
  Receipt Date: 20130614
  Transmission Date: 20140414
  Serious: Yes (Other)
  Sender: FDA-Public Use
  Company Number: None

PATIENT
  Age: 6 Year
  Sex: Female
  Weight: 22.68 kg

DRUGS (2)
  1. SINGULAR [Suspect]
     Indication: ASTHMA
     Dates: start: 20080405, end: 20130606
  2. SINGULAR [Suspect]
     Indication: ASTHMA

REACTIONS (1)
  - Mental disorder [None]
